FAERS Safety Report 23194967 (Version 2)
Quarter: 2023Q4

REPORT INFORMATION
  Report Type: Other
  Country: JP (occurrence: None)
  Receive Date: 20231117
  Receipt Date: 20231212
  Transmission Date: 20240109
  Serious: Yes (Other)
  Sender: FDA-Public Use
  Company Number: JP-ROCHE-3458138

PATIENT

DRUGS (4)
  1. RITUXIMAB [Suspect]
     Active Substance: RITUXIMAB
     Indication: Non-Hodgkin^s lymphoma
     Dosage: ON DAY 8
     Route: 041
  2. GEMCITABINE [Suspect]
     Active Substance: GEMCITABINE
     Indication: Non-Hodgkin^s lymphoma
     Dosage: ON DAYS 1 AND 8, WITH PREDEFINED DOSE ADJUSTMENT CRITERIA FOR GEM ON DAY 8; CBDCA AT AN AREA UNDER T
     Route: 042
  3. DEXAMETHASONE [Suspect]
     Active Substance: DEXAMETHASONE
     Indication: Non-Hodgkin^s lymphoma
     Dosage: BY MOUTH OR ADMINISTERED IV ON DAYS 1-4 WITHOUT DOSE REDUCTION
     Route: 065
  4. CARBOPLATIN [Suspect]
     Active Substance: CARBOPLATIN
     Indication: Non-Hodgkin^s lymphoma
     Route: 065

REACTIONS (11)
  - Anaemia [Unknown]
  - Thrombocytopenia [Unknown]
  - Neutropenia [Unknown]
  - Febrile neutropenia [Unknown]
  - Hyperglycaemia [Unknown]
  - Pneumonia [Unknown]
  - Kidney infection [Unknown]
  - Appendicitis [Unknown]
  - Pneumatosis intestinalis [Unknown]
  - Lower gastrointestinal haemorrhage [Unknown]
  - Gastrointestinal perforation [Unknown]
